FAERS Safety Report 9648971 (Version 1)
Quarter: 2013Q4

REPORT INFORMATION
  Report Type: Spontaneous
  Country: US (occurrence: None)
  Receive Date: 20131018
  Receipt Date: 20131018
  Transmission Date: 20140711
  Serious: Yes (Other)
  Sender: FDA-Public Use
  Company Number: AEGR000075

PATIENT
  Age: 72 Year
  Sex: Female
  Weight: 60.8 kg

DRUGS (1)
  1. JUXTAPID [Suspect]
     Indication: BLOOD CHOLESTEROL ABNORMAL
     Route: 048
     Dates: start: 201304, end: 20130701

REACTIONS (2)
  - Flank pain [None]
  - Abdominal pain [None]
